FAERS Safety Report 4441367-8 (Version None)
Quarter: 2004Q3

REPORT INFORMATION
  Report Type: 
  Country: None (occurrence: None)
  Receive Date: 20040728
  Receipt Date: 20040429
  Transmission Date: 20050211
  Serious: No
  Sender: FDA-Public Use
  Company Number: USA040466315

PATIENT
  Sex: Female
  Weight: 45 kg

DRUGS (1)
  1. STRATTERA [Suspect]
     Dates: start: 20040101, end: 20040101

REACTIONS (2)
  - ABNORMAL BEHAVIOUR [None]
  - FEELING ABNORMAL [None]
